FAERS Safety Report 25818538 (Version 1)
Quarter: 2025Q3

REPORT INFORMATION
  Report Type: Report from Study
  Country: EU (occurrence: EU)
  Receive Date: 20250918
  Receipt Date: 20250918
  Transmission Date: 20251021
  Serious: Yes (Hospitalization, Other)
  Sender: MYLAN
  Company Number: EU-JNJFOC-20240477827

PATIENT
  Age: 80 Year
  Sex: Female

DRUGS (15)
  1. DEXAMETHASONE [Suspect]
     Active Substance: DEXAMETHASONE
     Indication: Plasma cell myeloma
  2. LENALIDOMIDE [Suspect]
     Active Substance: LENALIDOMIDE
     Indication: Plasma cell myeloma
  3. TOLODODEKIN ALFA [Suspect]
     Active Substance: TOLODODEKIN ALFA
     Indication: Neoplasm
     Dosage: 1800 MILLIGRAM, QW
     Dates: start: 20240401, end: 20240401
  4. TOLODODEKIN ALFA [Suspect]
     Active Substance: TOLODODEKIN ALFA
     Indication: Plasma cell myeloma
     Dosage: 1800 MILLIGRAM, QW (15 ML)
     Dates: start: 20240408, end: 20240408
  5. TOLODODEKIN ALFA [Suspect]
     Active Substance: TOLODODEKIN ALFA
     Dosage: 1800 MILLIGRAM, QW (15 ML)
     Dates: start: 20240415, end: 20240415
  6. NAPROXEN [Concomitant]
     Active Substance: NAPROXEN
     Indication: Prophylaxis
     Dosage: 500 MILLIGRAM, BID
  7. LORAZEPAM [Concomitant]
     Active Substance: LORAZEPAM
     Indication: Prophylaxis
     Dosage: 1 MILLIGRAM, QD
  8. DIAZEPAM [Concomitant]
     Active Substance: DIAZEPAM
     Indication: Prophylaxis
     Dosage: 5 MILLIGRAM, QD
  9. Durfenta [Concomitant]
     Indication: Prophylaxis
     Dosage: 25 MICROGRAM, TID
  10. ACYCLOVIR [Concomitant]
     Active Substance: ACYCLOVIR
     Indication: Prophylaxis
     Dosage: 800 MILLIGRAM, QD
  11. CALCIUM CARBONATE [Concomitant]
     Active Substance: CALCIUM CARBONATE
     Indication: Prophylaxis
     Dosage: 1250 MILLIGRAM, QD
  12. FOSTER [Concomitant]
     Active Substance: BECLOMETHASONE\FORMOTEROL
     Indication: Bronchial hyperreactivity
     Dosage: UNK UNK, QD (TOTAL DAILY DOSE: 400/6MCG (SPRAY))
  13. MOMETASONE [Concomitant]
     Active Substance: MOMETASONE
     Indication: Prophylaxis
     Dosage: 0.1 PERCENT, QD
  14. Hibor [Concomitant]
     Indication: Prophylaxis
  15. METFORMIN HYDROCHLORIDE\VILDAGLIPTIN [Concomitant]
     Active Substance: METFORMIN HYDROCHLORIDE\VILDAGLIPTIN
     Indication: Type 2 diabetes mellitus

REACTIONS (2)
  - Febrile neutropenia [Recovering/Resolving]
  - Atrial fibrillation [Recovering/Resolving]

NARRATIVE: CASE EVENT DATE: 20240417
